FAERS Safety Report 13833001 (Version 1)
Quarter: 2017Q3

REPORT INFORMATION
  Report Type: Spontaneous
  Country: US (occurrence: US)
  Receive Date: 20170803
  Receipt Date: 20170803
  Transmission Date: 20171127
  Serious: Yes (Disabling)
  Sender: FDA-Public Use
  Company Number: None

PATIENT
  Age: 69 Year
  Sex: Female
  Weight: 55.8 kg

DRUGS (10)
  1. TICE BCG [Suspect]
     Active Substance: BACILLUS CALMETTE-GUERIN SUBSTRAIN TICE LIVE ANTIGEN
     Indication: BLADDER CANCER
     Dosage: ?          OTHER FREQUENCY:WEEKLY;OTHER ROUTE:INTRAVESICAL?
     Route: 043
     Dates: start: 20130321, end: 20150731
  2. KLONOPIN [Concomitant]
     Active Substance: CLONAZEPAM
  3. VITAMIN B12 [Concomitant]
     Active Substance: CYANOCOBALAMIN
  4. VITAMIN D3 [Concomitant]
     Active Substance: CHOLECALCIFEROL
  5. TYLENOL [Concomitant]
     Active Substance: ACETAMINOPHEN
  6. FISH OIL [Concomitant]
     Active Substance: FISH OIL
  7. AMITIZA [Concomitant]
     Active Substance: LUBIPROSTONE
  8. FOLIC ACID. [Concomitant]
     Active Substance: FOLIC ACID
  9. OXYCODONE [Concomitant]
     Active Substance: OXYCODONE
  10. OMEGA 3 [Concomitant]
     Active Substance: OMEGA-3 FATTY ACIDS

REACTIONS (4)
  - Hypoaesthesia [None]
  - Fatigue [None]
  - Pain in extremity [None]
  - Balance disorder [None]

NARRATIVE: CASE EVENT DATE: 20150707
